FAERS Safety Report 20643432 (Version 3)
Quarter: 2022Q2

REPORT INFORMATION
  Report Type: Report from Study
  Country: JP (occurrence: JP)
  Receive Date: 20220328
  Receipt Date: 20220419
  Transmission Date: 20220721
  Serious: Yes (Hospitalization, Other)
  Sender: FDA-Public Use
  Company Number: JP-ALNYLAM PHARMACEUTICALS, INC.-ALN-2021-000376

PATIENT

DRUGS (41)
  1. ONPATTRO [Suspect]
     Active Substance: PATISIRAN SODIUM
     Indication: Hereditary neuropathic amyloidosis
     Dosage: 16.5 MILLIGRAM, Q3W
     Route: 041
     Dates: start: 20201210, end: 20211014
  2. CALONAL [Concomitant]
     Active Substance: ACETAMINOPHEN
     Indication: Prophylaxis
     Dosage: 500 MILLIGRAM, SINGLE
     Route: 048
     Dates: start: 20201210, end: 20211014
  3. POLARAMINE [Concomitant]
     Active Substance: DEXCHLORPHENIRAMINE MALEATE
     Indication: Prophylaxis
     Dosage: 5 MILLIGRAM, SINGLE
     Route: 065
     Dates: start: 20201210, end: 20211014
  4. GASTER [Concomitant]
     Active Substance: FAMOTIDINE
     Indication: Prophylaxis
     Dosage: 20 MILLIGRAM, SINGLE
     Route: 065
     Dates: start: 20201210, end: 20211014
  5. DECADRON [Concomitant]
     Active Substance: DEXAMETHASONE
     Indication: Prophylaxis
     Dosage: 9.9 MILLIGRAM, SINGLE
     Route: 065
     Dates: start: 20201210, end: 20201210
  6. DECADRON [Concomitant]
     Active Substance: DEXAMETHASONE
     Dosage: 7.5 MILLIGRAM, SINGLE
     Route: 065
     Dates: start: 20210107, end: 20210107
  7. DECADRON [Concomitant]
     Active Substance: DEXAMETHASONE
     Dosage: 5 MILLIGRAM, SINGLE
     Route: 065
     Dates: start: 20210128, end: 20211014
  8. ASPIRIN [Concomitant]
     Active Substance: ASPIRIN
     Indication: Cerebellar infarction
     Dosage: 100 MILLIGRAM, QD
     Route: 048
     Dates: end: 20210927
  9. NEXIUM [Concomitant]
     Active Substance: ESOMEPRAZOLE MAGNESIUM
     Indication: Prophylaxis
     Dosage: 10 MILLIGRAM, QD
     Route: 048
  10. XARELTO [Concomitant]
     Active Substance: RIVAROXABAN
     Indication: Atrial fibrillation
     Dosage: 10 MILLIGRAM, QD
     Route: 048
     Dates: end: 20211022
  11. XARELTO [Concomitant]
     Active Substance: RIVAROXABAN
     Dosage: 10 MILLIGRAM, QD
     Route: 048
     Dates: start: 20211027
  12. CARVEDILOL [Concomitant]
     Active Substance: CARVEDILOL
     Indication: Cardiac failure chronic
     Dosage: 2.5 MILLIGRAM, BID
     Route: 048
     Dates: end: 20210701
  13. CARVEDILOL [Concomitant]
     Active Substance: CARVEDILOL
     Dosage: 1.25 MILLIGRAM, BID
     Route: 048
     Dates: start: 20210701
  14. FEBUXOSTAT [Concomitant]
     Active Substance: FEBUXOSTAT
     Indication: Hyperuricaemia
     Dosage: 20 MILLIGRAM, QD
     Route: 048
  15. SPIRONOLACTONE [Concomitant]
     Active Substance: SPIRONOLACTONE
     Indication: Cardiac failure chronic
     Dosage: 25 MILLIGRAM, QD
     Route: 048
  16. FUROSEMIDE [Concomitant]
     Active Substance: FUROSEMIDE
     Indication: Cardiac failure chronic
     Dosage: 20 MILLIGRAM, QD
     Route: 048
     Dates: end: 20210422
  17. FUROSEMIDE [Concomitant]
     Active Substance: FUROSEMIDE
     Dosage: 20 MILLIGRAM, QD
     Route: 048
     Dates: start: 20210514, end: 20211022
  18. FUROSEMIDE [Concomitant]
     Active Substance: FUROSEMIDE
     Dosage: 20 MILLIGRAM, QD
     Route: 048
     Dates: start: 20211105
  19. AZOSEMIDE [Concomitant]
     Active Substance: AZOSEMIDE
     Indication: Cardiac failure chronic
     Dosage: 60 MILLIGRAM, QD
     Route: 048
     Dates: end: 20211022
  20. AZOSEMIDE [Concomitant]
     Active Substance: AZOSEMIDE
     Dosage: 60 MILLIGRAM, QD
     Route: 048
     Dates: start: 20211105
  21. PIMOBENDAN [Concomitant]
     Active Substance: PIMOBENDAN
     Indication: Cardiac failure chronic
     Dosage: 2.5 MILLIGRAM, BID
     Route: 048
  22. BELSOMRA [Concomitant]
     Active Substance: SUVOREXANT
     Indication: Sleep disorder
     Dosage: 15 MILLIGRAM, QD
     Route: 048
  23. BROTIZOLAM [Concomitant]
     Active Substance: BROTIZOLAM
     Indication: Sleep disorder
     Dosage: 0.5 MILLIGRAM, QD
     Route: 048
  24. PRAMIPEXOLE [Concomitant]
     Active Substance: PRAMIPEXOLE
     Indication: Periodic limb movement disorder
     Dosage: 0.125 MILLIGRAM, BID
     Route: 048
     Dates: end: 20210218
  25. PRAMIPEXOLE [Concomitant]
     Active Substance: PRAMIPEXOLE
     Indication: Restless legs syndrome
  26. CERCINE [Concomitant]
     Active Substance: DIAZEPAM
     Indication: Periodic limb movement disorder
     Dosage: 1 MILLIGRAM, QD
     Route: 048
     Dates: end: 20210330
  27. CERCINE [Concomitant]
     Active Substance: DIAZEPAM
     Indication: Restless legs syndrome
  28. SODIUM FERROUS CITRATE [Concomitant]
     Active Substance: SODIUM FERROUS CITRATE
     Indication: Iron deficiency anaemia
     Dosage: 50 MILLIGRAM, BID
     Route: 048
     Dates: end: 20210422
  29. LOCOID [Concomitant]
     Active Substance: HYDROCORTISONE BUTYRATE
     Indication: Stasis dermatitis
     Dosage: SUITABLE QUANTITY, BID
     Route: 061
     Dates: start: 20201210, end: 20210128
  30. LOCOID [Concomitant]
     Active Substance: HYDROCORTISONE BUTYRATE
     Indication: Eczema asteatotic
  31. FLUOCINONIDE [Concomitant]
     Active Substance: FLUOCINONIDE
     Indication: Stasis dermatitis
     Dosage: SUITABLE QUANTITY, BID
     Route: 061
     Dates: start: 20201218, end: 20210128
  32. FLUOCINONIDE [Concomitant]
     Active Substance: FLUOCINONIDE
     Indication: Eczema asteatotic
  33. TRICHLORMETHIAZIDE [Concomitant]
     Active Substance: TRICHLORMETHIAZIDE
     Indication: Cardiac failure chronic
     Dosage: 1 MILLIGRAM, QD
     Route: 048
     Dates: end: 20210422
  34. TRICHLORMETHIAZIDE [Concomitant]
     Active Substance: TRICHLORMETHIAZIDE
     Dosage: 0.5 MILLIGRAM, QD
     Route: 048
     Dates: start: 20210423, end: 20210513
  35. TRICHLORMETHIAZIDE [Concomitant]
     Active Substance: TRICHLORMETHIAZIDE
     Dosage: 1 MILLIGRAM, QD
     Route: 048
     Dates: start: 20210608, end: 20210622
  36. TRICHLORMETHIAZIDE [Concomitant]
     Active Substance: TRICHLORMETHIAZIDE
     Dosage: 1 MILLIGRAM, QD
     Route: 048
     Dates: start: 20211101, end: 20211125
  37. TRICHLORMETHIAZIDE [Concomitant]
     Active Substance: TRICHLORMETHIAZIDE
     Dosage: 1 MILLIGRAM, QD
     Route: 048
     Dates: start: 20211203
  38. GLYCOSAMINOGLYCANS [Concomitant]
     Active Substance: GLYCOSAMINOGLYCANS
     Indication: Stasis dermatitis
     Dosage: SUITABLE QUANTITY, BID
     Route: 061
     Dates: start: 20210401, end: 20210605
  39. GLYCOSAMINOGLYCANS [Concomitant]
     Active Substance: GLYCOSAMINOGLYCANS
     Indication: Eczema asteatotic
  40. LINZESS [Concomitant]
     Active Substance: LINACLOTIDE
     Indication: Prophylaxis
     Dosage: 0.5 MILLIGRAM, QD
     Route: 048
     Dates: start: 20210628, end: 20211021
  41. SODIUM PICOSULFATE [Concomitant]
     Active Substance: SODIUM PICOSULFATE
     Indication: Prophylaxis
     Dosage: 5-15 DROPS, PRN
     Route: 048
     Dates: start: 20210628

REACTIONS (10)
  - Septic shock [Recovered/Resolved]
  - Periodic limb movement disorder [Recovering/Resolving]
  - Restless legs syndrome [Recovering/Resolving]
  - Pain [Recovering/Resolving]
  - Stasis dermatitis [Not Recovered/Not Resolved]
  - Hypercholesterolaemia [Recovered/Resolved]
  - Eyelid contusion [Recovered/Resolved]
  - Back pain [Recovering/Resolving]
  - Anaemia [Recovered/Resolved]
  - Urinary tract infection [Recovered/Resolved]

NARRATIVE: CASE EVENT DATE: 20210115
